FAERS Safety Report 6042720-1 (Version None)
Quarter: 2009Q1

REPORT INFORMATION
  Report Type: 
  Country: None (occurrence: None)
  Receive Date: 20090119
  Receipt Date: 20090109
  Transmission Date: 20090719
  Serious: Yes (Other)
  Sender: FDA-Public Use
  Company Number: PHHO2007MX00801

PATIENT
  Sex: Male

DRUGS (5)
  1. DIOVAN [Suspect]
     Indication: HYPERTENSION
     Dosage: 1 TABLET (80 MG) PER DAY
     Route: 048
     Dates: start: 20060101
  2. DIOVAN [Suspect]
     Dosage: 1/2 TABLET (80 MG) DAILY
     Route: 048
     Dates: start: 20061101, end: 20061201
  3. DIOVAN [Suspect]
     Dosage: 1/3 TAB (80 MG) DAILY
     Route: 048
     Dates: start: 20061201
  4. CONCOR [Concomitant]
     Indication: HYPERTENSION
     Dosage: 0.5 TAB DAILY
     Dates: start: 20040101
  5. CLONAZEPAM [Concomitant]
     Indication: ANXIETY
     Dosage: 10 DROPS/DAILY
     Route: 047
     Dates: start: 20040101

REACTIONS (11)
  - ABASIA [None]
  - APHASIA [None]
  - ASTHENIA [None]
  - CARDIOVASCULAR DISORDER [None]
  - DIZZINESS [None]
  - HEADACHE [None]
  - HYPERTENSIVE CRISIS [None]
  - HYPOTENSION [None]
  - MUSCLE RIGIDITY [None]
  - MUSCULOSKELETAL STIFFNESS [None]
  - VISUAL ACUITY REDUCED [None]
